FAERS Safety Report 14435370 (Version 5)
Quarter: 2020Q3

REPORT INFORMATION
  Report Type: Spontaneous
  Country: DK (occurrence: DK)
  Receive Date: 20180125
  Receipt Date: 20180829
  Transmission Date: 20201105
  Serious: Yes (Hospitalization)
  Sender: FDA-Public Use
  Company Number: DK-ROCHE-2057112

PATIENT
  Age: 70 Year
  Sex: Female
  Weight: 72 kg

DRUGS (8)
  1. DOMPERIDONE [Concomitant]
     Active Substance: DOMPERIDONE
     Indication: NAUSEA
     Route: 048
     Dates: start: 2017
  2. PREDNISOLONE. [Concomitant]
     Active Substance: PREDNISOLONE
     Indication: THROMBOSIS
     Route: 048
     Dates: start: 20171124
  3. ALECENSA [Suspect]
     Active Substance: ALECTINIB HYDROCHLORIDE
     Dosage: THERAPY RESTARTED
     Route: 065
     Dates: start: 20180116
  4. ALECENSA [Suspect]
     Active Substance: ALECTINIB HYDROCHLORIDE
     Indication: NON-SMALL CELL LUNG CANCER
     Dosage: THERAPY INTERRUPTED DUE TO EVENTS
     Route: 048
     Dates: start: 20171213, end: 20180110
  5. XARELTO [Concomitant]
     Active Substance: RIVAROXABAN
     Indication: THROMBOSIS
     Dosage: *4 AS NEEDED
     Route: 048
     Dates: start: 201505
  6. TRAMADOL. [Concomitant]
     Active Substance: TRAMADOL
     Indication: PAIN
     Dosage: X 4 AS NEEDED
     Route: 048
     Dates: start: 2017
  7. PANTOPRAZOLE [Concomitant]
     Active Substance: PANTOPRAZOLE
     Indication: GASTRITIS
     Dosage: *4 AS NEEDED
     Route: 048
     Dates: start: 2016
  8. PANODIL [Concomitant]
     Active Substance: ACETAMINOPHEN
     Indication: PAIN
     Dosage: X 4 AS NEEDED
     Route: 048

REACTIONS (5)
  - Confusional state [Recovered/Resolved with Sequelae]
  - Herpes simplex encephalitis [Recovered/Resolved]
  - Pyrexia [Recovered/Resolved]
  - Depressed level of consciousness [Recovered/Resolved]
  - Cerebral disorder [Not Recovered/Not Resolved]

NARRATIVE: CASE EVENT DATE: 20180110
